FAERS Safety Report 4365128-3 (Version None)
Quarter: 2004Q2

REPORT INFORMATION
  Report Type: 
  Country: None (occurrence: None)
  Receive Date: 20040521
  Receipt Date: 20040506
  Transmission Date: 20050107
  Serious: Yes (Hospitalization)
  Sender: FDA-Public Use
  Company Number: I04-341-040

PATIENT
  Age: 55 Year
  Sex: Male

DRUGS (10)
  1. VELCADE [Suspect]
     Indication: MULTIPLE MYELOMA
     Dosage: 2.25 MG : INTRAVENOUS
     Route: 042
     Dates: start: 20040119, end: 20040217
  2. VELCADE [Suspect]
  3. ACTRAPID INSULIN NOVO (INSULIN) [Concomitant]
  4. EPREX [Concomitant]
  5. MAGNE-B6 (DYNAMAG) [Concomitant]
  6. MIXTARD (INITARD) [Concomitant]
  7. PREVISCAN (FLUINDIONE) [Concomitant]
  8. FOLIC ACID [Concomitant]
  9. FERROUS SULFATE TAB [Concomitant]
  10. XANAX [Concomitant]

REACTIONS (2)
  - CYTOLYTIC HEPATITIS [None]
  - PANCREATITIS ACUTE [None]
